FAERS Safety Report 7377733-0 (Version None)
Quarter: 2011Q1

REPORT INFORMATION
  Report Type: 
  Country: None (occurrence: None)
  Receive Date: 20110316
  Receipt Date: 20110302
  Transmission Date: 20110831
  Serious: Yes (Death)
  Sender: FDA-Public Use
  Company Number: AE 2011-083

PATIENT
  Age: 59 Year
  Sex: Female

DRUGS (5)
  1. THORAZINE [Concomitant]
  2. LEXAPRO [Concomitant]
  3. ARICEPT [Concomitant]
  4. FAZACLO ODT [Suspect]
     Indication: ABNORMAL BEHAVIOUR
     Dosage: 62.5 MG DAILY PO
     Route: 048
     Dates: start: 20070811
  5. FAZACLO ODT [Suspect]
     Indication: DEMENTIA
     Dosage: 62.5 MG DAILY PO
     Route: 048
     Dates: start: 20070811

REACTIONS (1)
  - DEATH [None]
